FAERS Safety Report 13860471 (Version 1)
Quarter: 2017Q3

REPORT INFORMATION
  Report Type: Spontaneous
  Country: CA (occurrence: CA)
  Receive Date: 20170811
  Receipt Date: 20170811
  Transmission Date: 20171127
  Serious: Yes (Other)
  Sender: FDA-Public Use
  Company Number: CA-SA-2017SA143133

PATIENT
  Age: 89 Year
  Sex: Male

DRUGS (1)
  1. BCG FOR IMMUNOTHERAPY [Suspect]
     Active Substance: BACILLUS CALMETTE-GUERIN ANTIGEN, UNSPECIFIED SUBSTRAIN
     Indication: BLADDER CANCER
     Route: 043

REACTIONS (12)
  - Disseminated Bacillus Calmette-Guerin infection [Unknown]
  - Dysarthria [Unknown]
  - Somnolence [Unknown]
  - Hemiparesis [Unknown]
  - Vasculitis cerebral [Unknown]
  - Confusional state [Unknown]
  - Endophthalmitis [Unknown]
  - Paraesthesia [Unknown]
  - Vasculitis [Unknown]
  - Clumsiness [Unknown]
  - Aphasia [Unknown]
  - Cerebrovascular disorder [Unknown]
